FAERS Safety Report 8290518-6 (Version None)
Quarter: 2012Q2

REPORT INFORMATION
  Report Type: 
  Country: None (occurrence: None)
  Receive Date: 20120417
  Receipt Date: 20110418
  Transmission Date: 20120825
  Serious: Yes (Hospitalization)
  Sender: FDA-Public Use
  Company Number: US-ASTRAZENECA-2010SE49605

PATIENT
  Age: 20056 Day
  Sex: Female

DRUGS (3)
  1. TOPROL-XL [Suspect]
     Route: 048
  2. NEXIUM [Suspect]
     Route: 048
  3. PLAVIX [Concomitant]

REACTIONS (4)
  - HYPERTENSION [None]
  - MIGRAINE [None]
  - OEDEMA PERIPHERAL [None]
  - DYSPEPSIA [None]
